FAERS Safety Report 6315954-6 (Version None)
Quarter: 2009Q3

REPORT INFORMATION
  Report Type: 
  Country: None (occurrence: None)
  Receive Date: 20090820
  Receipt Date: 20090706
  Transmission Date: 20100115
  Serious: No
  Sender: FDA-Public Use
  Company Number: US-KINGPHARMUSA00001-K200900801

PATIENT
  Sex: Female

DRUGS (2)
  1. CYTOMEL [Suspect]
     Indication: HYPOTHYROIDISM
     Dosage: 5 MCG, QD
     Route: 048
     Dates: start: 20090601, end: 20090702
  2. LEVOXYL [Concomitant]
     Dosage: 135 MCG, QD
     Route: 048

REACTIONS (8)
  - AGITATION [None]
  - ERYTHEMA [None]
  - EYE PAIN [None]
  - FEELING HOT [None]
  - OEDEMA PERIPHERAL [None]
  - OVERDOSE [None]
  - PARAESTHESIA [None]
  - PSYCHOMOTOR HYPERACTIVITY [None]
